FAERS Safety Report 15208769 (Version 3)
Quarter: 2018Q3

REPORT INFORMATION
  Report Type: Spontaneous
  Country: AU (occurrence: AU)
  Receive Date: 20180727
  Receipt Date: 20180905
  Transmission Date: 20181010
  Serious: Yes (Other)
  Sender: FDA-Public Use
  Company Number: AU-OTSUKA-2018_026849

PATIENT
  Age: 37 Year
  Sex: Female

DRUGS (1)
  1. ABILIFY MAINTENA [Suspect]
     Active Substance: ARIPIPRAZOLE
     Indication: DELUSION
     Dosage: 300 MG, QM
     Route: 030
     Dates: start: 2017

REACTIONS (22)
  - Rash pruritic [Unknown]
  - Eye movement disorder [Unknown]
  - Vision blurred [Unknown]
  - Swollen tongue [Unknown]
  - Muscular weakness [Unknown]
  - Tremor [Unknown]
  - Weight increased [Unknown]
  - Product use in unapproved indication [Unknown]
  - Regressive behaviour [Unknown]
  - Abdominal distension [Unknown]
  - Dyspnoea [Unknown]
  - Lip swelling [Unknown]
  - Angina pectoris [Unknown]
  - Irritability [Unknown]
  - Urinary incontinence [Unknown]
  - Eyelid ptosis [Unknown]
  - Migraine [Unknown]
  - Amnesia [Unknown]
  - Eye pain [Unknown]
  - Alopecia [Unknown]
  - Blindness transient [Unknown]
  - Jaundice [Unknown]

NARRATIVE: CASE EVENT DATE: 2017
